FAERS Safety Report 13308570 (Version 2)
Quarter: 2018Q1

REPORT INFORMATION
  Report Type: Spontaneous
  Country: US (occurrence: US)
  Receive Date: 20170308
  Receipt Date: 20180302
  Transmission Date: 20180508
  Serious: No
  Sender: FDA-Public Use
  Company Number: US-AMGEN-USASP2017029144

PATIENT
  Age: 75 Year
  Sex: Female

DRUGS (1)
  1. SENSIPAR [Suspect]
     Active Substance: CINACALCET HYDROCHLORIDE
     Indication: OSTEOPOROSIS
     Dosage: UNK
     Route: 048
     Dates: start: 2016

REACTIONS (2)
  - Drug dose omission [Unknown]
  - Off label use [Unknown]
